FAERS Safety Report 11327605 (Version 2)
Quarter: 2017Q2

REPORT INFORMATION
  Report Type: Report from Study
  Country: US (occurrence: US)
  Receive Date: 20150731
  Receipt Date: 20170403
  Transmission Date: 20170829
  Serious: Yes (Death, Other)
  Sender: FDA-Public Use
  Company Number: US-ROCHE-630142

PATIENT

DRUGS (2)
  1. PEG-INTERFERON ALFA 2A [Suspect]
     Active Substance: PEGINTERFERON ALFA-2A
     Indication: POLYCYTHAEMIA VERA
  2. PEG-INTERFERON ALFA 2A [Suspect]
     Active Substance: PEGINTERFERON ALFA-2A
     Indication: IMMUNE THROMBOCYTOPENIC PURPURA
     Dosage: INITIAL PEG-IFN- 2A STARTING DOSE WAS 450MCG/WEEK, BUT THAT WAS MODIFIED TO THE CURRENT STARTING DOS
     Route: 058

REACTIONS (46)
  - Gastrointestinal disorder [Unknown]
  - Respiratory disorder [Unknown]
  - Cardiovascular disorder [Unknown]
  - Hypothyroidism [Unknown]
  - Cardiac disorder [Fatal]
  - Fatigue [Unknown]
  - Cardiotoxicity [Unknown]
  - Dizziness [Unknown]
  - Confusional state [Unknown]
  - Vision blurred [Unknown]
  - Sjogren^s syndrome [Unknown]
  - Autoimmune thyroiditis [Unknown]
  - Musculoskeletal disorder [Unknown]
  - Osmotic demyelination syndrome [Fatal]
  - Liver function test increased [Unknown]
  - Infection [Unknown]
  - Depression [Unknown]
  - Rash pruritic [Unknown]
  - Hepatitis [Unknown]
  - Neutropenia [Unknown]
  - Thrombocytopenia [Unknown]
  - Diarrhoea [Unknown]
  - Vasculitis [Unknown]
  - Dermatitis [Unknown]
  - Musculoskeletal pain [Unknown]
  - Hyponatraemia [Unknown]
  - Skin disorder [Unknown]
  - Pain [Unknown]
  - Anaemia [Unknown]
  - Embolism [Unknown]
  - Myalgia [Unknown]
  - Nervous system disorder [Unknown]
  - Pyrexia [Unknown]
  - Retinal ischaemia [Unknown]
  - Retinal infiltrates [Unknown]
  - Aortic stenosis [Unknown]
  - Thrombosis [Unknown]
  - Dyspnoea [Unknown]
  - Cerebral haemorrhage [Unknown]
  - Pruritus [Unknown]
  - Decreased appetite [Unknown]
  - Mucosal inflammation [Unknown]
  - Lupus nephritis [Unknown]
  - Mental disorder [Unknown]
  - Rash [Unknown]
  - Pulmonary hypertension [Unknown]
